FAERS Safety Report 16058803 (Version 2)
Quarter: 2019Q1

REPORT INFORMATION
  Report Type: Spontaneous
  Country: AU (occurrence: AU)
  Receive Date: 20190311
  Receipt Date: 20190314
  Transmission Date: 20190418
  Serious: Yes (Life-Threatening, Other)
  Sender: FDA-Public Use
  Company Number: AU-PFIZER INC-2019099669

PATIENT
  Age: 54 Year
  Sex: Male
  Weight: 112 kg

DRUGS (1)
  1. PROPOFOL. [Suspect]
     Active Substance: PROPOFOL
     Indication: SEDATION
     Dosage: UNK

REACTIONS (5)
  - Gastrooesophageal reflux disease [Recovered/Resolved]
  - Systemic toxicity [Recovered/Resolved]
  - Bradycardia [Recovered/Resolved]
  - Myoclonus [Recovered/Resolved]
  - Obstructive airways disorder [Recovered/Resolved]
